FAERS Safety Report 7570320-0 (Version None)
Quarter: 2011Q2

REPORT INFORMATION
  Report Type: 
  Country: None (occurrence: None)
  Receive Date: 20110620
  Receipt Date: 20110607
  Transmission Date: 20111010
  Serious: Yes (Hospitalization)
  Sender: FDA-Public Use
  Company Number: UTC-007729

PATIENT
  Age: 65 Year
  Sex: Female

DRUGS (4)
  1. COUMADIN [Concomitant]
  2. TYVASO [Suspect]
     Indication: PULMONARY ARTERIAL HYPERTENSION
     Dosage: 18 TO 54 MICROGRAMS (4 IN 1 D),INHALATION
     Route: 055
     Dates: start: 20101109
  3. ADCIRCA [Concomitant]
  4. DIURETICS (DIURETICS) [Concomitant]

REACTIONS (3)
  - PULMONARY OEDEMA [None]
  - PULMONARY ARTERIAL HYPERTENSION [None]
  - CONDITION AGGRAVATED [None]
